FAERS Safety Report 18729824 (Version 1)
Quarter: 2021Q1

REPORT INFORMATION
  Report Type: Spontaneous
  Country: US (occurrence: US)
  Receive Date: 20210112
  Receipt Date: 20210112
  Transmission Date: 20210419
  Serious: Yes (Other)
  Sender: FDA-Public Use
  Company Number: US-SA-2021SA006430

PATIENT
  Age: 63 Year
  Sex: Female
  Weight: 73.8 kg

DRUGS (21)
  1. ATORVASTATIN [Concomitant]
     Active Substance: ATORVASTATIN
     Dosage: UNK
     Dates: start: 20150831, end: 20171124
  2. FLUOXETINE HYDROCHLORIDE. [Concomitant]
     Active Substance: FLUOXETINE HYDROCHLORIDE
     Dosage: UNK
     Dates: start: 20111101, end: 20171211
  3. MELOXICAM. [Concomitant]
     Active Substance: MELOXICAM
     Dosage: UNK
     Dates: start: 20111101, end: 20180119
  4. TRAZODONE [Concomitant]
     Active Substance: TRAZODONE HYDROCHLORIDE
     Dosage: UNK
     Dates: start: 20111223, end: 20151117
  5. TAXOTERE [Suspect]
     Active Substance: DOCETAXEL
     Dosage: 135 MG
     Dates: start: 20160107, end: 20160107
  6. RALOXIFENE HCL [Concomitant]
     Active Substance: RALOXIFENE
     Dosage: UNK
     Dates: start: 20161102, end: 20171017
  7. CARBOPLATIN. [Concomitant]
     Active Substance: CARBOPLATIN
     Indication: BREAST CANCER FEMALE
     Dosage: UNK
     Dates: start: 20151029, end: 20160218
  8. TAXOTERE [Suspect]
     Active Substance: DOCETAXEL
     Dosage: 105 MG
     Dates: start: 20160128, end: 20160128
  9. OMEPRAZOLE. [Concomitant]
     Active Substance: OMEPRAZOLE
     Dosage: UNK
     Dates: start: 20111101, end: 20180119
  10. HYDROCODONE BITARTRATE AND ACETAMINOPHEN [Concomitant]
     Active Substance: ACETAMINOPHEN\HYDROCODONE BITARTRATE
     Dosage: UNK
     Dates: start: 20070621, end: 20160325
  11. CYCLOBENZAPRINE. [Concomitant]
     Active Substance: CYCLOBENZAPRINE
     Dosage: UNK
     Dates: start: 20111101, end: 20151117
  12. TAXOTERE [Suspect]
     Active Substance: DOCETAXEL
     Indication: BREAST CANCER FEMALE
     Dosage: 135 MG
     Dates: start: 20151029, end: 20151029
  13. IBUPROFEN. [Concomitant]
     Active Substance: IBUPROFEN
     Dosage: UNK
     Dates: start: 20111101, end: 20180119
  14. PRAVASTATIN SODIUM. [Concomitant]
     Active Substance: PRAVASTATIN SODIUM
     Dosage: UNK
     Dates: start: 20111101, end: 20180119
  15. BUSPIRONE HCL [Concomitant]
     Active Substance: BUSPIRONE HYDROCHLORIDE
     Dosage: UNK
     Dates: start: 20111101, end: 20180119
  16. PREDNISONE. [Concomitant]
     Active Substance: PREDNISONE
     Dosage: UNK
     Dates: start: 20130531, end: 20170809
  17. LISINOPRIL. [Concomitant]
     Active Substance: LISINOPRIL
     Dosage: UNK
     Dates: start: 20120109, end: 20180108
  18. AMOXICILLIN. [Concomitant]
     Active Substance: AMOXICILLIN
  19. MAGNESIUM OXIDE. [Concomitant]
     Active Substance: MAGNESIUM OXIDE
     Dosage: UNK
     Dates: start: 20111101, end: 20180119
  20. TAXOTERE [Suspect]
     Active Substance: DOCETAXEL
     Dosage: 105 MG
     Dates: start: 20160218, end: 20160218
  21. GABAPENTIN. [Concomitant]
     Active Substance: GABAPENTIN
     Dosage: UNK
     Dates: start: 20130619, end: 20170908

REACTIONS (2)
  - Alopecia [Recovering/Resolving]
  - Psychological trauma [Unknown]

NARRATIVE: CASE EVENT DATE: 20151112
